FAERS Safety Report 12425844 (Version 1)
Quarter: 2016Q2

REPORT INFORMATION
  Report Type: Spontaneous
  Country: JP (occurrence: JP)
  Receive Date: 20160601
  Receipt Date: 20160601
  Transmission Date: 20160815
  Serious: Yes (Death)
  Sender: FDA-Public Use
  Company Number: JP-BAYER-2016-106124

PATIENT
  Sex: Male

DRUGS (3)
  1. PLAVIX [Concomitant]
     Active Substance: CLOPIDOGREL BISULFATE
     Route: 048
  2. BAYASPIRIN [Suspect]
     Active Substance: ASPIRIN
     Route: 048
  3. PANALDINE [Concomitant]
     Active Substance: TICLOPIDINE HYDROCHLORIDE
     Route: 048

REACTIONS (1)
  - Interstitial lung disease [Fatal]
